FAERS Safety Report 4947600-8 (Version None)
Quarter: 2006Q1

REPORT INFORMATION
  Report Type: 
  Country: None (occurrence: None)
  Receive Date: 20060320
  Receipt Date: 20060306
  Transmission Date: 20060701
  Serious: Yes (Other)
  Sender: FDA-Public Use
  Company Number: JP-JNJFOC-20060102977

PATIENT
  Age: 70 Year
  Sex: Male

DRUGS (1)
  1. DUROTEP [Suspect]
     Indication: CANCER PAIN
     Route: 062
     Dates: start: 20060110, end: 20060112

REACTIONS (4)
  - ALANINE AMINOTRANSFERASE INCREASED [None]
  - ASPARTATE AMINOTRANSFERASE INCREASED [None]
  - BLOOD ALKALINE PHOSPHATASE INCREASED [None]
  - GAMMA-GLUTAMYLTRANSFERASE INCREASED [None]
